FAERS Safety Report 12708273 (Version 1)
Quarter: 2016Q3

REPORT INFORMATION
  Report Type: Spontaneous
  Country: GB (occurrence: GB)
  Receive Date: 20160901
  Receipt Date: 20160901
  Transmission Date: 20161109
  Serious: Yes (Other)
  Sender: FDA-Public Use
  Company Number: GB-TEVA-687462ACC

PATIENT
  Age: 30 Year
  Sex: Female
  Weight: 78 kg

DRUGS (4)
  1. PREDNISOLONE. [Concomitant]
     Active Substance: PREDNISOLONE
  2. TEVA UK SPIRONOLACTONE [Suspect]
     Active Substance: SPIRONOLACTONE
     Indication: ACNE CYSTIC
     Dosage: 50 MILLIGRAM DAILY;
     Route: 048
     Dates: start: 20160624, end: 20160707
  3. ISOTRETINOIN [Concomitant]
     Active Substance: ISOTRETINOIN
  4. IBUPROFEN. [Concomitant]
     Active Substance: IBUPROFEN

REACTIONS (1)
  - Muscle spasms [Recovering/Resolving]

NARRATIVE: CASE EVENT DATE: 20160629
